FAERS Safety Report 10031633 (Version 3)
Quarter: 2014Q2

REPORT INFORMATION
  Report Type: Spontaneous
  Country: US (occurrence: US)
  Receive Date: 20140324
  Receipt Date: 20140425
  Transmission Date: 20141212
  Serious: No
  Sender: FDA-Public Use
  Company Number: US-PFIZER INC-2013095287

PATIENT
  Age: 72 Year
  Sex: Female
  Weight: 87.08 kg

DRUGS (15)
  1. LYRICA [Suspect]
     Indication: NEUROPATHY PERIPHERAL
     Dosage: 75 MG (1 TAB), 2X/DAY
     Route: 048
     Dates: end: 201312
  2. ZYRTEC [Concomitant]
  3. AMLODIPINE [Concomitant]
     Indication: HYPERTENSION
     Dosage: UNK
  4. CLONIDINE [Concomitant]
     Indication: HYPERTENSION
     Dosage: UNK,2X/DAY
  5. LOSARTAN [Concomitant]
     Dosage: UNK
  6. JANUMET [Concomitant]
     Dosage: UNK
  7. OMEPRAZOLE [Concomitant]
     Dosage: UNK
  8. GEMFIBROZIL [Concomitant]
     Dosage: UNK
  9. ZETIA [Concomitant]
     Dosage: UNK
  10. LEVEMIR [Concomitant]
     Dosage: UNK
  11. NOVOLOG [Concomitant]
     Dosage: UNK
  12. FUROSEMIDE [Concomitant]
     Dosage: UNK
  13. INTEGRA [Concomitant]
  14. ALBUTEROL [Concomitant]
     Dosage: UNK
  15. AMLODIPINE BESYLATE [Concomitant]
     Dosage: UNK

REACTIONS (3)
  - Pain [Unknown]
  - Discomfort [Unknown]
  - Neuropathy peripheral [Unknown]
